FAERS Safety Report 8251833-5 (Version None)
Quarter: 2012Q2

REPORT INFORMATION
  Report Type: 
  Country: None (occurrence: None)
  Receive Date: 20120402
  Receipt Date: 20120330
  Transmission Date: 20120825
  Serious: No
  Sender: FDA-Public Use
  Company Number: US-BAYER-2012-031666

PATIENT
  Age: 60 Year
  Sex: Male

DRUGS (5)
  1. BYSTOLIC [Concomitant]
     Indication: HYPERTENSION
     Dosage: 5 MG, QD
  2. ASPIRIN [Concomitant]
     Dosage: UNK UNK, QD
  3. RAMIPRIL [Concomitant]
     Indication: HYPERTENSION
     Dosage: 5 MG, QD
  4. LEVITRA [Suspect]
     Dosage: 20 MG, ONCE
     Route: 048
     Dates: start: 20120330
  5. TAMSULOSIN HCL [Concomitant]
     Indication: URINARY TRACT DISORDER
     Dosage: 0.4 MG, QD

REACTIONS (1)
  - DRUG INEFFECTIVE [None]
